FAERS Safety Report 10963434 (Version 1)
Quarter: 2015Q1

REPORT INFORMATION
  Report Type: Spontaneous
  Country: US (occurrence: None)
  Receive Date: 20150325
  Receipt Date: 20150325
  Transmission Date: 20150721
  Serious: Yes (Other)
  Sender: FDA-Public Use
  Company Number: None

PATIENT
  Age: 46 Year
  Sex: Female

DRUGS (1)
  1. POLYMYXIN [Suspect]
     Active Substance: POLYMYXIN
     Indication: BLEPHARITIS

REACTIONS (4)
  - Erythema [None]
  - Burning sensation [None]
  - Eyelid oedema [None]
  - Condition aggravated [None]

NARRATIVE: CASE EVENT DATE: 20150217
